FAERS Safety Report 7775397-5 (Version None)
Quarter: 2011Q3

REPORT INFORMATION
  Report Type: 
  Country: None (occurrence: None)
  Receive Date: 20110923
  Receipt Date: 20110913
  Transmission Date: 20111222
  Serious: Yes (Death, Other)
  Sender: FDA-Public Use
  Company Number: PHHY2011BE82005

PATIENT
  Age: 36 Year
  Sex: Female

DRUGS (16)
  1. FLUCONAZOLE [Concomitant]
     Dosage: 400 MG, UNK
  2. VORICONAZOLE [Concomitant]
     Dosage: UNK UKN, UNK
  3. SILICA OIL [Concomitant]
     Dosage: UNK UKN, UNK
  4. ANTIBIOTICS [Concomitant]
     Dosage: UNK UKN, UNK
  5. PROPRANOLOL [Concomitant]
     Dosage: UNK UKN, UNK
  6. CYCLOSPORINE [Suspect]
     Indication: ACUTE GRAFT VERSUS HOST DISEASE
     Dosage: UNK UKN, UNK
  7. ACYCLOVIR [Concomitant]
     Dosage: UNK UKN, UNK
  8. PYRIMETHAMINE TAB [Concomitant]
     Dosage: UNK UKN, UNK
  9. MOXIFLOXACIN [Concomitant]
     Dosage: UNK UKN, UNK
  10. CLINDAMYCIN [Concomitant]
     Dosage: UNK UKN, UNK
  11. SULFAMETHOXAZOLE AND TRIMETHOPRIM [Concomitant]
     Dosage: UNK UKN, UNK
  12. AMBISOME [Concomitant]
  13. GANCICLOVIR [Concomitant]
     Dosage: UNK UKN, UNK
  14. FOSCAVIR [Concomitant]
     Dosage: UNK UKN, UNK
  15. AMPHOTERICIN B [Concomitant]
     Dosage: UNK UKN, UNK
  16. METHIMAZOLE [Concomitant]
     Dosage: 10 MG, TID

REACTIONS (23)
  - TACHYCARDIA [None]
  - COUGH [None]
  - EYE INFECTION FUNGAL [None]
  - RETINAL INFILTRATES [None]
  - VITREOUS OPACITIES [None]
  - CONFUSIONAL STATE [None]
  - BLINDNESS [None]
  - RETINAL INJURY [None]
  - HYPERTHYROIDISM [None]
  - LUNG INFILTRATION [None]
  - PERICARDIAL EFFUSION [None]
  - OEDEMA PERIPHERAL [None]
  - PULMONARY ALVEOLAR HAEMORRHAGE [None]
  - PNEUMONIA BACTERIAL [None]
  - UVEITIS [None]
  - CARDIOPULMONARY FAILURE [None]
  - ASCITES [None]
  - ASPERGILLOSIS [None]
  - ERYTHEMA [None]
  - COMPUTERISED TOMOGRAM THORAX ABNORMAL [None]
  - BRAIN ABSCESS [None]
  - CENTRAL NERVOUS SYSTEM LESION [None]
  - CUSHINGOID [None]
